FAERS Safety Report 15274298 (Version 2)
Quarter: 2018Q3

REPORT INFORMATION
  Report Type: Spontaneous
  Country: US (occurrence: US)
  Receive Date: 20180814
  Receipt Date: 20180814
  Transmission Date: 20181010
  Serious: No
  Sender: FDA-Public Use
  Company Number: US-AUROBINDO-AUR-APU-2017-42962

PATIENT
  Sex: Male

DRUGS (1)
  1. LEVOFLOXACIN. [Suspect]
     Active Substance: LEVOFLOXACIN
     Indication: PNEUMONIA
     Dosage: 2 DOSES THROUGH IV
     Route: 042
     Dates: start: 20171028

REACTIONS (1)
  - Heart rate increased [Recovered/Resolved]

NARRATIVE: CASE EVENT DATE: 20171028
